FAERS Safety Report 6736075-4 (Version None)
Quarter: 2010Q2

REPORT INFORMATION
  Report Type: 
  Country: None (occurrence: None)
  Receive Date: 20100521
  Receipt Date: 20100510
  Transmission Date: 20101027
  Serious: Yes (Death, Hospitalization, Other)
  Sender: FDA-Public Use
  Company Number: US-PFIZER INC-2010009947

PATIENT
  Sex: Female
  Weight: 68.5 kg

DRUGS (2)
  1. SUTENT [Suspect]
     Indication: RENAL CANCER METASTATIC
     Dosage: 50 MG, 1X/DAY, FOR 4 WEEKS OF EVERY 6 WEEKS
     Route: 048
     Dates: start: 20091211, end: 20100108
  2. COUMADIN [Concomitant]
     Indication: THROMBOSIS
     Dosage: UNK
     Dates: start: 20091001

REACTIONS (8)
  - DEATH [None]
  - HAEMATOCHEZIA [None]
  - HEADACHE [None]
  - INTERNATIONAL NORMALISED RATIO [None]
  - LETHARGY [None]
  - NAUSEA [None]
  - TUMOUR HAEMORRHAGE [None]
  - VOMITING [None]
